FAERS Safety Report 8725204 (Version 2)
Quarter: 2012Q4

REPORT INFORMATION
  Report Type: 
  Country: US (occurrence: US)
  Receive Date: 20120815
  Receipt Date: 20120829
  Transmission Date: 20130627
  Serious: Yes (Other)
  Sender: FDA-Public Use
  Company Number: US-ASTRAZENECA-2012SE55618

PATIENT
  Age: 74 Year
  Sex: Female
  Weight: 77.1 kg

DRUGS (3)
  1. CRESTOR [Suspect]
     Indication: BLOOD CHOLESTEROL INCREASED
     Route: 048
     Dates: start: 2007
  2. CRESTOR [Suspect]
     Indication: BLOOD CHOLESTEROL INCREASED
     Route: 048
  3. A LOT OF MEDICATIONS [Concomitant]

REACTIONS (6)
  - Cerebrovascular accident [Unknown]
  - Gait disturbance [Unknown]
  - Adverse event [Unknown]
  - Back disorder [Unknown]
  - Muscle spasms [Unknown]
  - Drug dose omission [Unknown]
